FAERS Safety Report 7226762-6 (Version None)
Quarter: 2011Q1

REPORT INFORMATION
  Report Type: 
  Country: None (occurrence: None)
  Receive Date: 20110105
  Receipt Date: 20101223
  Transmission Date: 20110831
  Serious: Yes (Hospitalization, Other)
  Sender: FDA-Public Use
  Company Number: ZYD-10-AE-305

PATIENT
  Age: 58 Year
  Sex: Male
  Weight: 140 kg

DRUGS (4)
  1. WARFARIN (ZYDUS) [Suspect]
     Indication: ATRIAL FIBRILLATION
     Dosage: ORAL
     Route: 048
     Dates: start: 20091214, end: 20100407
  2. ENALAPRIL MALEATE AND HYDROCHLOROTHIAZIDE [Concomitant]
  3. ISOPTIN [Concomitant]
  4. DIGOXIN [Concomitant]

REACTIONS (2)
  - BLOOD BILIRUBIN INCREASED [None]
  - RENAL CELL CARCINOMA [None]
